FAERS Safety Report 9116019 (Version 1)
Quarter: 2013Q1

REPORT INFORMATION
  Report Type: Spontaneous
  Country: US (occurrence: US)
  Receive Date: 20130225
  Receipt Date: 20130225
  Transmission Date: 20140127
  Serious: No
  Sender: FDA-Public Use
  Company Number: US-TARO-2012P1048060

PATIENT
  Age: 70 Year
  Sex: Male
  Weight: 204.12 kg

DRUGS (10)
  1. DESOXIMETASONE [Suspect]
     Route: 061
     Dates: start: 20120625, end: 20120702
  2. INSULIN [Concomitant]
  3. DOXAZOSIN [Concomitant]
  4. HYDROCHLOROTHIAZIDE [Concomitant]
  5. ATENOLOL [Concomitant]
  6. FUROSEMIDE [Concomitant]
  7. LEVOTHYROXINE [Concomitant]
  8. CYMBALTA [Concomitant]
  9. POTASSIUM CHLORIDE [Concomitant]
  10. SIMVASTATIN [Concomitant]

REACTIONS (1)
  - Drug ineffective [Recovering/Resolving]
